FAERS Safety Report 4575018-9 (Version None)
Quarter: 2005Q1

REPORT INFORMATION
  Report Type: 
  Country: None (occurrence: None)
  Receive Date: 20050208
  Receipt Date: 20050127
  Transmission Date: 20050727
  Serious: Yes (Other)
  Sender: FDA-Public Use
  Company Number: JP-ROCHE-394556

PATIENT
  Age: 13 Year
  Sex: Male

DRUGS (4)
  1. CELLCEPT [Suspect]
     Route: 048
  2. CYCLOSPORINE [Suspect]
     Route: 048
  3. PREDNISOLONE [Suspect]
     Route: 048
  4. SIMULECT [Suspect]
     Route: 050

REACTIONS (5)
  - DISSEMINATED INTRAVASCULAR COAGULATION [None]
  - KIDNEY TRANSPLANT REJECTION [None]
  - NEPHROCALCINOSIS [None]
  - POST PROCEDURAL COMPLICATION [None]
  - RENAL NECROSIS [None]
